FAERS Safety Report 20500832 (Version 3)
Quarter: 2022Q2

REPORT INFORMATION
  Report Type: Spontaneous
  Country: JP (occurrence: JP)
  Receive Date: 20220222
  Receipt Date: 20220520
  Transmission Date: 20220721
  Serious: No
  Sender: FDA-Public Use
  Company Number: JP-GLAXOSMITHKLINE-JP2022JPN029892

PATIENT

DRUGS (33)
  1. SOTROVIMAB [Suspect]
     Active Substance: SOTROVIMAB
     Indication: COVID-19
     Dosage: 500 MG PER DAY
     Route: 042
     Dates: start: 20220215, end: 20220215
  2. PRIMPERAN [Suspect]
     Active Substance: METOCLOPRAMIDE HYDROCHLORIDE
     Indication: Nausea
     Dosage: 15 MG PER DAY
     Route: 048
     Dates: start: 20210823
  3. PRIMPERAN [Suspect]
     Active Substance: METOCLOPRAMIDE HYDROCHLORIDE
     Indication: Vomiting
  4. PRIMPERAN [Suspect]
     Active Substance: METOCLOPRAMIDE HYDROCHLORIDE
     Indication: Hyperemesis gravidarum
     Dosage: 10 MG PER DAY
     Route: 042
     Dates: start: 20210805, end: 20220224
  5. OMEPRAZOLE [Suspect]
     Active Substance: OMEPRAZOLE
     Indication: Gastrooesophageal reflux disease
     Dosage: 20 MG PER DAY
     Route: 048
     Dates: start: 20211021
  6. POTASSIUM CHLORIDE [Suspect]
     Active Substance: POTASSIUM CHLORIDE
     Indication: Hyperemesis gravidarum
     Dosage: 0.5 A PER DAY
     Route: 042
     Dates: start: 20210809, end: 20210813
  7. GASTER [Suspect]
     Active Substance: FAMOTIDINE
     Indication: Abdominal pain upper
     Dosage: 20 MG PER DAY
     Route: 048
     Dates: start: 20210822
  8. VITAMINS [Suspect]
     Active Substance: VITAMINS
     Indication: Hyperemesis gravidarum
     Dosage: 2 G PER DAY
     Route: 048
     Dates: start: 20210823
  9. HERBAL NOS [Suspect]
     Active Substance: HERBALS
     Indication: Abdominal pain upper
     Dosage: 7.5 G PER DAY
     Route: 048
     Dates: start: 20210827
  10. HERBAL NOS [Suspect]
     Active Substance: HERBALS
     Indication: Vomiting
  11. ZOLPIDEM TARTRATE [Suspect]
     Active Substance: ZOLPIDEM TARTRATE
     Indication: Insomnia
     Dosage: 5 MG PER DOSE, WHEN SLEEPLESSNESS OCCURRED
     Route: 048
     Dates: start: 20210907
  12. DRAMAMINE [Suspect]
     Active Substance: DIMENHYDRINATE
     Indication: Nausea
     Dosage: 150 MG PER DAY
     Route: 048
     Dates: start: 20210922
  13. DRAMAMINE [Suspect]
     Active Substance: DIMENHYDRINATE
     Indication: Vomiting
  14. FERRIC CITRATE ANHYDROUS [Suspect]
     Active Substance: FERRIC CITRATE ANHYDROUS
     Indication: Iron deficiency anaemia
     Dosage: 500 MG PER DAY
     Route: 048
     Dates: start: 20210927, end: 20220217
  15. CALONAL [Suspect]
     Active Substance: ACETAMINOPHEN
     Indication: Pain
     Dosage: 400 MG PER DOSE, WHEN PAIN OR PYREXIA OCCURRED
     Route: 048
     Dates: start: 20211005
  16. CALONAL [Suspect]
     Active Substance: ACETAMINOPHEN
     Indication: Pyrexia
  17. CEFACLOR [Suspect]
     Active Substance: CEFACLOR
     Indication: Urinary tract infection
     Dosage: 750 MG PER DAY
     Route: 048
     Dates: start: 20220215, end: 20220220
  18. COMIRNATY [Suspect]
     Active Substance: TOZINAMERAN
     Indication: Prophylaxis
     Dosage: UNK
     Route: 030
     Dates: start: 20211029, end: 20211029
  19. DEXTROSE\POTASSIUM CHLORIDE\SODIUM CHLORIDE\SODIUM LACTATE, L- [Suspect]
     Active Substance: DEXTROSE\POTASSIUM CHLORIDE\SODIUM CHLORIDE\SODIUM LACTATE, L-
     Indication: Hyperemesis gravidarum
     Dosage: ADJUSTED AS NEEDED
     Route: 042
     Dates: start: 20210721, end: 20220222
  20. CYANOCOBALAMIN\PYRIDOXINE HYDROCHLORIDE\THIAMINE [Suspect]
     Active Substance: CYANOCOBALAMIN\PYRIDOXINE HYDROCHLORIDE\THIAMINE
     Indication: Hyperemesis gravidarum
     Dosage: 1 V PER DAY
     Route: 042
     Dates: start: 20210721, end: 20220222
  21. RIBOFLAVIN 5^-PHOSPHATE SODIUM ANHYDROUS [Suspect]
     Active Substance: RIBOFLAVIN 5^-PHOSPHATE SODIUM ANHYDROUS
     Indication: Hyperemesis gravidarum
     Dosage: 20 MG PER DAY
     Route: 042
     Dates: start: 20210721, end: 20220222
  22. ASCORBIC ACID [Suspect]
     Active Substance: ASCORBIC ACID
     Indication: Hyperemesis gravidarum
     Dosage: 500 MG PER DAY
     Route: 042
     Dates: start: 20210721, end: 20220222
  23. CALCIUM GLUCONATE\DEXTROSE\MAGNESIUM CHLORIDE\POTASSIUM CHLORIDE\SODIU [Suspect]
     Active Substance: CALCIUM GLUCONATE\DEXTROSE\MAGNESIUM CHLORIDE\POTASSIUM CHLORIDE\SODIUM ACETATE\SODIUM CHLORIDE\TRIS
     Indication: Hyperemesis gravidarum
     Dosage: ADJUSTED AS NEEDED
     Route: 042
     Dates: start: 20210806, end: 20220224
  24. LANSOPRAZOLE [Suspect]
     Active Substance: LANSOPRAZOLE
     Indication: Hyperemesis gravidarum
     Dosage: 30 MG PER DAY
     Route: 042
     Dates: start: 20210813, end: 20211019
  25. GASTER [Suspect]
     Active Substance: FAMOTIDINE
     Indication: Hyperemesis gravidarum
     Dosage: 20 MG PER DAY
     Route: 042
     Dates: start: 20210818, end: 20220224
  26. DEXTROSE\SODIUM CHLORIDE\SODIUM LACTATE [Suspect]
     Active Substance: DEXTROSE\SODIUM CHLORIDE\SODIUM LACTATE
     Indication: Hyperemesis gravidarum
     Dosage: ADJUSTED AS NEEDED
     Route: 042
     Dates: start: 20210903, end: 20210906
  27. AMINO ACIDS\DEXTROSE\ELECTROLYTES NOS\VITAMINS [Suspect]
     Active Substance: AMINO ACIDS\DEXTROSE\ELECTROLYTES NOS\VITAMINS
     Indication: Hyperemesis gravidarum
     Dosage: ADJUSTED AS NEEDED
     Route: 042
     Dates: start: 20210904, end: 20210924
  28. DIPHENHYDRAMINE HYDROCHLORIDE\DYPHYLLINE [Suspect]
     Active Substance: DIPHENHYDRAMINE HYDROCHLORIDE\DYPHYLLINE
     Indication: Nausea
     Dosage: 1 A PER DOSE
     Route: 058
     Dates: start: 20210908, end: 20211019
  29. DIPHENHYDRAMINE HYDROCHLORIDE\DYPHYLLINE [Suspect]
     Active Substance: DIPHENHYDRAMINE HYDROCHLORIDE\DYPHYLLINE
     Indication: Vomiting
  30. GUAIFENESIN [Suspect]
     Active Substance: GUAIFENESIN
     Indication: Iron deficiency anaemia
     Dosage: 80 MG PER DAY
     Route: 042
     Dates: start: 20210913, end: 20220214
  31. FERINJECT [Suspect]
     Active Substance: FERRIC CARBOXYMALTOSE
     Indication: Iron deficiency anaemia
     Dosage: 500 MG PER DAY
     Route: 042
     Dates: start: 20210922, end: 20210922
  32. CALCIUM CHLORIDE\DEXTROSE\POTASSIUM CHLORIDE\SODIUM CHLORIDE\SODIUM LA [Suspect]
     Active Substance: CALCIUM CHLORIDE\DEXTROSE\POTASSIUM CHLORIDE\SODIUM CHLORIDE\SODIUM LACTATE
     Dosage: UNK
     Route: 042
     Dates: start: 20220214, end: 20220214
  33. CALCIUM CHLORIDE ANHYDROUS\POTASSIUM CHLORIDE\SODIUM CHLORIDE\SODIUM L [Suspect]
     Active Substance: CALCIUM CHLORIDE ANHYDROUS\POTASSIUM CHLORIDE\SODIUM CHLORIDE\SODIUM LACTATE
     Dosage: UNK
     Route: 042
     Dates: start: 20220220, end: 20220224

REACTIONS (2)
  - Exposure during pregnancy [Unknown]
  - Live birth [Unknown]
